FAERS Safety Report 5467285-4 (Version None)
Quarter: 2007Q3

REPORT INFORMATION
  Report Type: 
  Country: None (occurrence: None)
  Receive Date: 20070925
  Receipt Date: 20070913
  Transmission Date: 20080115
  Serious: Yes (Death)
  Sender: FDA-Public Use
  Company Number: ES-PFIZER INC-2007076745

PATIENT
  Age: 80 Year
  Sex: Female

DRUGS (1)
  1. ZELDOX (CAPSULES) [Suspect]
     Indication: DEMENTIA

REACTIONS (4)
  - DEATH [None]
  - INSOMNIA [None]
  - RESTLESSNESS [None]
  - SEDATION [None]
